FAERS Safety Report 19312996 (Version 3)
Quarter: 2021Q3

REPORT INFORMATION
  Report Type: Spontaneous
  Country: JP (occurrence: JP)
  Receive Date: 20210527
  Receipt Date: 20210708
  Transmission Date: 20211014
  Serious: Yes (Hospitalization, Other)
  Sender: FDA-Public Use
  Company Number: JP-NOVOPROD-815133

PATIENT
  Age: 75 Year
  Sex: Female

DRUGS (1)
  1. RYBELSUS [Suspect]
     Active Substance: SEMAGLUTIDE
     Indication: TYPE 2 DIABETES MELLITUS
     Dosage: 3 MG, QD
     Route: 048
     Dates: start: 202104, end: 202105

REACTIONS (2)
  - Platelet count increased [Recovered/Resolved]
  - Thrombotic cerebral infarction [Recovered/Resolved]

NARRATIVE: CASE EVENT DATE: 202105
